FAERS Safety Report 20866324 (Version 2)
Quarter: 2022Q2

REPORT INFORMATION
  Report Type: Spontaneous
  Country: US (occurrence: None)
  Receive Date: 20220524
  Receipt Date: 20220610
  Transmission Date: 20220721
  Serious: Yes (Death, Hospitalization, Other)
  Sender: FDA-Public Use
  Company Number: 2022A192436

PATIENT
  Age: 27194 Day
  Sex: Female

DRUGS (1)
  1. CALQUENCE [Suspect]
     Active Substance: ACALABRUTINIB
     Dosage: UNKNOWN
     Route: 048
     Dates: start: 202203

REACTIONS (7)
  - Acute respiratory failure [Fatal]
  - Tumour lysis syndrome [Fatal]
  - COVID-19 pneumonia [Fatal]
  - Dyspnoea [Fatal]
  - Chronic lymphocytic leukaemia [Fatal]
  - Haemoglobin decreased [Unknown]
  - Pulmonary oedema [Unknown]

NARRATIVE: CASE EVENT DATE: 20220418
